FAERS Safety Report 19467683 (Version 1)
Quarter: 2021Q2

REPORT INFORMATION
  Report Type: Spontaneous
  Country: US (occurrence: US)
  Receive Date: 20210628
  Receipt Date: 20210628
  Transmission Date: 20210717
  Serious: Yes (Hospitalization)
  Sender: FDA-Public Use
  Company Number: None

PATIENT
  Sex: Male

DRUGS (1)
  1. CYCLOPHOSPHAMIDE 50MG [Suspect]
     Active Substance: CYCLOPHOSPHAMIDE
     Indication: AMYLOIDOSIS
     Dosage: OTHER FREQUENCY:ONCE WEEKLY;?
     Route: 048
     Dates: start: 20210108

REACTIONS (1)
  - Hospitalisation [None]
